FAERS Safety Report 9365732 (Version 1)
Quarter: 2013Q2

REPORT INFORMATION
  Report Type: Spontaneous
  Country: US (occurrence: None)
  Receive Date: 20130624
  Receipt Date: 20130624
  Transmission Date: 20140414
  Serious: Yes (Hospitalization)
  Sender: FDA-Public Use
  Company Number: None

PATIENT
  Age: 79 Year
  Sex: Male
  Weight: 69.2 kg

DRUGS (1)
  1. TERAZOSIN [Suspect]
     Indication: BENIGN PROSTATIC HYPERPLASIA
     Dosage: 5 MG AT BEDTIME PO
     Route: 048
     Dates: start: 20020801, end: 20130328

REACTIONS (2)
  - Dizziness [None]
  - Fall [None]
